FAERS Safety Report 7560023-0 (Version None)
Quarter: 2011Q2

REPORT INFORMATION
  Report Type: 
  Country: None (occurrence: None)
  Receive Date: 20110621
  Receipt Date: 20110615
  Transmission Date: 20111010
  Serious: Yes (Death, Other)
  Sender: FDA-Public Use
  Company Number: PHHY2011US53789

PATIENT
  Age: 51 Year
  Sex: Male

DRUGS (1)
  1. NILOTINIB [Suspect]
     Dosage: 400 MG, BID

REACTIONS (7)
  - ANAL ULCER [None]
  - PAIN [None]
  - ERYTHEMA INDURATUM [None]
  - BACTERIAL SEPSIS [None]
  - HAEMORRHOIDS [None]
  - TACHYCARDIA [None]
  - FEBRILE NEUTROPENIA [None]
